FAERS Safety Report 21611544 (Version 1)
Quarter: 2022Q4

REPORT INFORMATION
  Report Type: Spontaneous
  Country: US (occurrence: None)
  Receive Date: 20221117
  Receipt Date: 20221117
  Transmission Date: 20230113
  Serious: Yes (Hospitalization)
  Sender: FDA-Public Use
  Company Number: None

PATIENT
  Age: 85 Year
  Sex: Male
  Weight: 76.5 kg

DRUGS (2)
  1. CARBOPLATIN [Suspect]
     Active Substance: CARBOPLATIN
     Dates: end: 20220830
  2. TAXOL [Suspect]
     Active Substance: PACLITAXEL
     Dates: end: 20220830

REACTIONS (6)
  - Asthenia [None]
  - Hypophagia [None]
  - Weight decreased [None]
  - Coronavirus test positive [None]
  - Acute kidney injury [None]
  - Hypertension [None]

NARRATIVE: CASE EVENT DATE: 20220904
